FAERS Safety Report 4439172-1 (Version None)
Quarter: 2004Q3

REPORT INFORMATION
  Report Type: 
  Country: None (occurrence: None)
  Receive Date: 20040831
  Receipt Date: 20040809
  Transmission Date: 20050211
  Serious: Yes (Disabling)
  Sender: FDA-Public Use
  Company Number: AVE_0028_2004

PATIENT
  Age: 56 Year
  Sex: Male
  Weight: 81.6475 kg

DRUGS (6)
  1. NICOTINE [Suspect]
     Indication: SMOKING CESSATION THERAPY
     Dosage: 21 MG QDAY TD
     Route: 062
     Dates: start: 20040601, end: 20040601
  2. NICOTINE TRANSDERMAL PATCH, 14 MG [Suspect]
     Indication: SMOKING CESSATION THERAPY
     Dosage: 14 MG QDAY TD
     Route: 062
     Dates: start: 20040701
  3. CARDIZEM [Concomitant]
  4. BENICAR [Concomitant]
  5. PERCOCET [Concomitant]
  6. PLAVIX [Concomitant]

REACTIONS (3)
  - EATING DISORDER [None]
  - NAUSEA [None]
  - VISION BLURRED [None]
